FAERS Safety Report 8615978-X (Version None)
Quarter: 2012Q3

REPORT INFORMATION
  Report Type: 
  Country: None (occurrence: None)
  Receive Date: 20120823
  Receipt Date: 20120822
  Transmission Date: 20120928
  Serious: No
  Sender: FDA-Public Use
  Company Number: US-PFIZER INC-2012206818

PATIENT
  Age: 55 Year
  Sex: Female
  Weight: 57.596 kg

DRUGS (5)
  1. CHANTIX [Suspect]
     Dosage: UNK
     Route: 048
  2. METFORMIN [Concomitant]
     Indication: DIABETES MELLITUS
     Dosage: UNK
  3. ATENOLOL [Concomitant]
     Indication: HYPERTENSION
     Dosage: UNK
  4. CHANTIX [Suspect]
     Indication: SMOKING CESSATION THERAPY
     Dosage: 0.5 MG, 1X/DAY
     Route: 048
     Dates: start: 20111201
  5. ALBUTEROL [Concomitant]
     Indication: ASTHMA
     Dosage: UNK
     Route: 055

REACTIONS (2)
  - VITAMIN D DECREASED [None]
  - ABNORMAL DREAMS [None]
